FAERS Safety Report 24449924 (Version 1)
Quarter: 2024Q4

REPORT INFORMATION
  Report Type: Spontaneous
  Country: AU (occurrence: AU)
  Receive Date: 20241017
  Receipt Date: 20241017
  Transmission Date: 20250114
  Serious: Yes (Hospitalization, Other)
  Sender: LUPIN
  Company Number: AU-GENERIC HEALTH PTY. LTD.-2023-11979

PATIENT

DRUGS (2)
  1. LEVETIRACETAM [Suspect]
     Active Substance: LEVETIRACETAM
     Indication: Product used for unknown indication
     Dosage: 500 MG, BID
     Route: 065
  2. DEXAMETHASONE [Suspect]
     Active Substance: DEXAMETHASONE
     Indication: Product used for unknown indication
     Dosage: 4 MG, BID NOVARTIS SECTOR: PHARMA
     Route: 065

REACTIONS (4)
  - Headache [Unknown]
  - Pyrexia [Unknown]
  - Acute generalised exanthematous pustulosis [Unknown]
  - Neutrophilia [Unknown]
